FAERS Safety Report 9127707 (Version 1)
Quarter: 2013Q1

REPORT INFORMATION
  Report Type: Spontaneous
  Country: US (occurrence: US)
  Receive Date: 20130228
  Receipt Date: 20130228
  Transmission Date: 20140127
  Serious: No
  Sender: FDA-Public Use
  Company Number: US-GLAXOSMITHKLINE-A0994086A

PATIENT
  Age: 19 Year
  Sex: Male

DRUGS (5)
  1. LAMICTAL [Suspect]
     Indication: PRODUCT USED FOR UNKNOWN INDICATION
     Dosage: 2.5MG UNKNOWN
     Route: 065
  2. LATUDA [Suspect]
     Indication: BIPOLAR DISORDER
     Dosage: 40MG UNKNOWN
     Route: 048
  3. ZYPREXA [Concomitant]
  4. DEPAKOTE [Concomitant]
  5. COGENTIN [Concomitant]

REACTIONS (1)
  - Insomnia [Unknown]
